FAERS Safety Report 10175491 (Version 2)
Quarter: 2014Q3

REPORT INFORMATION
  Report Type: Spontaneous
  Country: IT (occurrence: IT)
  Receive Date: 20140516
  Receipt Date: 20140731
  Transmission Date: 20150326
  Serious: Yes (Hospitalization)
  Sender: FDA-Public Use
  Company Number: IT-ROCHE-1401465

PATIENT
  Age: 54 Year
  Sex: Male

DRUGS (2)
  1. ROCEFIN [Suspect]
     Active Substance: CEFTRIAXONE SODIUM
     Indication: BRONCHITIS
     Route: 030
     Dates: start: 20140214, end: 20140214
  2. NOVALGIN [Suspect]
     Active Substance: METAMIZOLE SODIUM
     Indication: BRONCHITIS
     Route: 048
     Dates: start: 20140214, end: 20140214

REACTIONS (3)
  - Urticaria [Recovered/Resolved]
  - Angioedema [Recovered/Resolved]
  - Dysphonia [Recovered/Resolved]

NARRATIVE: CASE EVENT DATE: 20140214
